FAERS Safety Report 6614948-0 (Version None)
Quarter: 2010Q1

REPORT INFORMATION
  Report Type: 
  Country: None (occurrence: None)
  Receive Date: 20100305
  Receipt Date: 20100225
  Transmission Date: 20100710
  Serious: Yes (Hospitalization)
  Sender: FDA-Public Use
  Company Number: JP-ASTRAZENECA-2010SE08044

PATIENT
  Age: 61 Year
  Sex: Female
  Weight: 70 kg

DRUGS (9)
  1. ARIMIDEX [Suspect]
     Indication: BREAST CANCER
     Route: 048
     Dates: start: 20080101, end: 20100123
  2. FLUOROURACIL [Concomitant]
     Indication: BREAST CANCER
     Route: 065
     Dates: start: 20080101, end: 20090801
  3. ASPIRIN [Concomitant]
     Indication: ATRIAL FIBRILLATION
     Route: 048
     Dates: start: 20090601, end: 20100123
  4. MUNOBAL [Concomitant]
     Indication: HYPERTENSION
     Route: 048
     Dates: end: 20100128
  5. LIPOBLOCK [Concomitant]
     Indication: HYPERLIPIDAEMIA
     Route: 048
     Dates: end: 20100128
  6. DIAZEPAM [Concomitant]
     Indication: PSYCHOSOMATIC DISEASE
     Route: 048
     Dates: end: 20100128
  7. LAC-B [Concomitant]
     Indication: IRRITABLE BOWEL SYNDROME
     Route: 048
     Dates: end: 20100128
  8. GASMOTIN [Concomitant]
     Indication: GASTRITIS
     Route: 048
     Dates: end: 20100128
  9. LAXOBERON [Concomitant]
     Indication: CONSTIPATION
     Route: 048
     Dates: end: 20100128

REACTIONS (1)
  - HEPATIC FUNCTION ABNORMAL [None]
